FAERS Safety Report 22079411 (Version 10)
Quarter: 2025Q3

REPORT INFORMATION
  Report Type: Report from Study
  Country: US (occurrence: US)
  Receive Date: 20230309
  Receipt Date: 20250828
  Transmission Date: 20251021
  Serious: Yes (Other)
  Sender: TAKEDA
  Company Number: US-TAKEDA-2021TUS063244

PATIENT
  Sex: Male
  Weight: 99 kg

DRUGS (32)
  1. HUMAN IMMUNOGLOBULIN G [Suspect]
     Active Substance: HUMAN IMMUNOGLOBULIN G
     Indication: Congenital hypogammaglobulinaemia
     Dosage: 30 GRAM, Q4WEEKS
  2. HUMAN IMMUNOGLOBULIN G [Suspect]
     Active Substance: HUMAN IMMUNOGLOBULIN G
     Dosage: 35 GRAM, Q4WEEKS
  3. ACETAMINOPHEN [Concomitant]
     Active Substance: ACETAMINOPHEN
  4. DIPHENHYDRAMINE [Concomitant]
     Active Substance: DIPHENHYDRAMINE
  5. LIDOCAINE [Concomitant]
     Active Substance: LIDOCAINE
  6. SODIUM CHLORIDE [Concomitant]
     Active Substance: SODIUM CHLORIDE
  7. EPINEPHRINE [Concomitant]
     Active Substance: EPINEPHRINE
  8. FISH OIL [Concomitant]
     Active Substance: FISH OIL
  9. MAGNESIUM [Concomitant]
     Active Substance: MAGNESIUM
  10. Glucosamine/chondroitin [Concomitant]
  11. QUERCETIN DIHYDRATE [Concomitant]
     Active Substance: QUERCETIN DIHYDRATE
  12. CHOLESTEROL [Concomitant]
     Active Substance: CHOLESTEROL
  13. Hair skin nails [Concomitant]
  14. BIOTIN [Concomitant]
     Active Substance: BIOTIN
  15. SODIUM CHLORIDE [Concomitant]
     Active Substance: SODIUM CHLORIDE
  16. GLUCOSAMINE [Concomitant]
     Active Substance: GLUCOSAMINE
  17. CHONDROITIN [Concomitant]
     Active Substance: CHONDROITIN
  18. Omega [Concomitant]
  19. METOPROLOL SUCCINATE [Concomitant]
     Active Substance: METOPROLOL SUCCINATE
  20. IBUPROFEN [Concomitant]
     Active Substance: IBUPROFEN
  21. MOTRIN IB [Concomitant]
     Active Substance: IBUPROFEN
  22. SIMETHICONE (DIMETHICONE) [Concomitant]
     Active Substance: DIMETHICONE
  23. DULOXETINE HYDROCHLORIDE [Concomitant]
     Active Substance: DULOXETINE HYDROCHLORIDE
  24. ATROPINE\DIPHENOXYLATE [Concomitant]
     Active Substance: ATROPINE\DIPHENOXYLATE
  25. IMODIUM [Concomitant]
     Active Substance: LOPERAMIDE HYDROCHLORIDE
  26. DIPHENHYDRAMINE HYDROCHLORIDE [Concomitant]
     Active Substance: DIPHENHYDRAMINE HYDROCHLORIDE
  27. DOCUSATE SODIUM [Concomitant]
     Active Substance: DOCUSATE SODIUM
  28. CHONDROITIN SULFATE (BOVINE)\GLUCOSAMINE HYDROCHLORIDE [Concomitant]
     Active Substance: CHONDROITIN SULFATE (BOVINE)\GLUCOSAMINE HYDROCHLORIDE
  29. DIAZEPAM [Concomitant]
     Active Substance: DIAZEPAM
  30. B active [Concomitant]
  31. LEVOFLOXACIN [Concomitant]
     Active Substance: LEVOFLOXACIN
  32. TADALAFIL [Concomitant]
     Active Substance: TADALAFIL

REACTIONS (16)
  - Pseudomonas infection [Unknown]
  - Intra-abdominal fluid collection [Unknown]
  - Postoperative abscess [Unknown]
  - Infusion related reaction [Unknown]
  - Musculoskeletal discomfort [Unknown]
  - Weight decreased [Unknown]
  - Gastrointestinal disorder [Unknown]
  - Stoma complication [Unknown]
  - Constipation [Recovered/Resolved]
  - Post procedural complication [Unknown]
  - Foreign body in eye [Recovered/Resolved]
  - Ocular hyperaemia [Recovered/Resolved]
  - Eye haemorrhage [Recovered/Resolved]
  - Sinusitis [Unknown]
  - Rash [Unknown]
  - Headache [Unknown]
